FAERS Safety Report 15869346 (Version 3)
Quarter: 2019Q1

REPORT INFORMATION
  Report Type: Report from Study
  Country: US (occurrence: US)
  Receive Date: 20190125
  Receipt Date: 20190327
  Transmission Date: 20190417
  Serious: Yes (Hospitalization)
  Sender: FDA-Public Use
  Company Number: US-ACTELION-A-US2017-161708

PATIENT
  Sex: Female
  Weight: 47.62 kg

DRUGS (6)
  1. VELETRI [Suspect]
     Active Substance: EPOPROSTENOL
     Dosage: 22 NG/KG, PER MIN
     Route: 042
  2. ADCIRCA [Concomitant]
     Active Substance: TADALAFIL
  3. LASIX [Concomitant]
     Active Substance: FUROSEMIDE
     Dosage: UNK
     Route: 042
  4. VELETRI [Suspect]
     Active Substance: EPOPROSTENOL
     Dosage: 24 NG/KG, PER MIN
     Route: 042
  5. VELETRI [Suspect]
     Active Substance: EPOPROSTENOL
     Indication: PULMONARY ARTERIAL HYPERTENSION
     Dosage: 12 NG/KG, PER MIN
     Route: 042
  6. LASIX [Concomitant]
     Active Substance: FUROSEMIDE
     Dosage: 80 MG, UNK
     Route: 048

REACTIONS (20)
  - Fluid retention [Unknown]
  - Dyspnoea [Recovering/Resolving]
  - Diarrhoea [Unknown]
  - Urosepsis [Unknown]
  - Constipation [Unknown]
  - Peripheral swelling [Unknown]
  - Headache [Unknown]
  - Nausea [Unknown]
  - Abdominal distension [Unknown]
  - Prescribed overdose [Unknown]
  - Fluid overload [Unknown]
  - Dry mouth [Unknown]
  - Dyspepsia [Unknown]
  - Pain in jaw [Not Recovered/Not Resolved]
  - Catheter site pain [Unknown]
  - Cardiac failure [Unknown]
  - Cystitis [Unknown]
  - Flushing [Unknown]
  - Vomiting [Unknown]
  - Oedema peripheral [Unknown]
